FAERS Safety Report 12828852 (Version 1)
Quarter: 2016Q4

REPORT INFORMATION
  Report Type: Spontaneous
  Country: US (occurrence: US)
  Receive Date: 20161007
  Receipt Date: 20161007
  Transmission Date: 20170207
  Serious: No
  Sender: FDA-Public Use
  Company Number: US-SA-2015SA169012

PATIENT
  Age: 50 Year
  Sex: Female

DRUGS (20)
  1. TRAMADOL HYDROCHLORIDE. [Concomitant]
     Active Substance: TRAMADOL HYDROCHLORIDE
  2. VENLAFAXINE HYDROCHLORIDE. [Concomitant]
     Active Substance: VENLAFAXINE HYDROCHLORIDE
  3. PRISTIQ EXTENDED-RELEASE [Concomitant]
     Active Substance: DESVENLAFAXINE SUCCINATE
  4. ALEVE [Concomitant]
     Active Substance: NAPROXEN SODIUM
     Dates: start: 20150417, end: 20150507
  5. IRON [Concomitant]
     Active Substance: IRON
  6. BIOTIN [Concomitant]
     Active Substance: BIOTIN
  7. MELATONIN [Concomitant]
     Active Substance: MELATONIN
     Dates: start: 20151019
  8. GABAPENTIN. [Concomitant]
     Active Substance: GABAPENTIN
  9. SEROQUEL [Concomitant]
     Active Substance: QUETIAPINE FUMARATE
  10. ABILIFY [Concomitant]
     Active Substance: ARIPIPRAZOLE
     Dates: start: 20150417, end: 20150507
  11. FETZIMA [Concomitant]
     Active Substance: LEVOMILNACIPRAN HYDROCHLORIDE
  12. REXULTI [Concomitant]
     Active Substance: BREXPIPRAZOLE
  13. AUBAGIO [Suspect]
     Active Substance: TERIFLUNOMIDE
     Indication: MULTIPLE SCLEROSIS
     Route: 048
  14. BACLOFEN. [Concomitant]
     Active Substance: BACLOFEN
  15. DEXAMETHASONE. [Concomitant]
     Active Substance: DEXAMETHASONE
  16. FLUOXETINE HYDROCHLORIDE. [Concomitant]
     Active Substance: FLUOXETINE HYDROCHLORIDE
  17. KLONOPIN [Concomitant]
     Active Substance: CLONAZEPAM
  18. KLOR-CON [Concomitant]
     Active Substance: POTASSIUM CHLORIDE
     Dosage: KLOR-CON M 10
  19. MELATONIN [Concomitant]
     Active Substance: MELATONIN
     Dates: start: 20150417, end: 20150507
  20. ASPIRIN. [Concomitant]
     Active Substance: ASPIRIN
     Dates: start: 20150417, end: 20150507

REACTIONS (10)
  - Headache [Unknown]
  - Myalgia [Unknown]
  - Muscle spasms [Unknown]
  - Pain [Unknown]
  - Fall [Unknown]
  - Hypoglycaemia [Unknown]
  - Alopecia [Unknown]
  - Depression [Unknown]
  - Sleep disorder [Unknown]
  - Dizziness [Unknown]
